FAERS Safety Report 5274307-2 (Version None)
Quarter: 2007Q1

REPORT INFORMATION
  Report Type: 
  Country: None (occurrence: None)
  Receive Date: 20070323
  Receipt Date: 20070312
  Transmission Date: 20070707
  Serious: Yes (Other)
  Sender: FDA-Public Use
  Company Number: US-SANOFI-SYNTHELABO-A03200702141

PATIENT
  Sex: Female
  Weight: 61.2 kg

DRUGS (12)
  1. VITAMIN E [Concomitant]
     Route: 065
  2. SOMA [Concomitant]
     Route: 048
  3. HYDROCHLOROTHIAZIDE [Concomitant]
     Route: 048
  4. ATENOLOL [Concomitant]
     Route: 048
  5. NORVASC [Concomitant]
     Route: 048
  6. ENALAPRIL MALEATE [Concomitant]
     Route: 048
  7. PREVACID [Concomitant]
     Route: 048
  8. DILAUDID [Concomitant]
     Route: 048
  9. CLONIDINE [Concomitant]
     Dosage: UNK
     Route: 065
  10. MORPHINE [Concomitant]
     Dosage: UNK
     Route: 065
  11. AMBIEN [Suspect]
     Indication: INSOMNIA
     Route: 048
     Dates: start: 20060101, end: 20060616
  12. LESCOL [Concomitant]
     Route: 048

REACTIONS (8)
  - AMNESIA [None]
  - CONFUSIONAL STATE [None]
  - DISORIENTATION [None]
  - EATING DISORDER [None]
  - IMPAIRED DRIVING ABILITY [None]
  - SLEEP WALKING [None]
  - SOMNOLENCE [None]
  - VISUAL DISTURBANCE [None]
